FAERS Safety Report 9015028 (Version 1)
Quarter: 2013Q1

REPORT INFORMATION
  Report Type: Spontaneous
  Country: US (occurrence: US)
  Receive Date: 20130116
  Receipt Date: 20130116
  Transmission Date: 20140127
  Serious: No
  Sender: FDA-Public Use
  Company Number: US-009507513-1301USA004342

PATIENT
  Age: 75 Year
  Sex: Male

DRUGS (10)
  1. JANUMET [Suspect]
     Indication: TYPE 2 DIABETES MELLITUS
     Dosage: 50MG/500MG, QD
     Route: 048
     Dates: start: 20100220
  2. JANUMET [Suspect]
     Dosage: 50MG/500MG, BID
     Route: 048
     Dates: start: 20100322
  3. JANUMET [Suspect]
     Dosage: 50MG/500MG, QD
     Route: 048
     Dates: start: 2012
  4. BYDUREON [Suspect]
     Dosage: UNK, ONCE WEEKLY
     Dates: start: 20121230
  5. VYTORIN [Concomitant]
  6. NIASPAN [Concomitant]
  7. COREG CR [Concomitant]
  8. LYRICA [Concomitant]
  9. PANTOPRAZOLE [Concomitant]
  10. AMIODARONE [Concomitant]

REACTIONS (2)
  - Blood glucose increased [Not Recovered/Not Resolved]
  - Weight loss poor [Not Recovered/Not Resolved]
